FAERS Safety Report 14392870 (Version 1)
Quarter: 2018Q1

REPORT INFORMATION
  Report Type: Other
  Country: US (occurrence: US)
  Receive Date: 20180116
  Receipt Date: 20180116
  Transmission Date: 20180509
  Serious: Yes (Hospitalization)
  Sender: FDA-Public Use
  Company Number: US-MERZ NORTH AMERICA, INC.-18MRZ-00030

PATIENT
  Age: 1 Year
  Sex: Female
  Weight: 9 kg

DRUGS (1)
  1. XEOMIN [Suspect]
     Active Substance: INCOBOTULINUMTOXINA
     Indication: POOR FEEDING INFANT
     Dosage: 30 UNITS
     Route: 030

REACTIONS (3)
  - Dysphagia [Recovering/Resolving]
  - Off label use [Recovering/Resolving]
  - Gastrooesophageal reflux disease [Recovering/Resolving]
